FAERS Safety Report 15384597 (Version 1)
Quarter: 2018Q3

REPORT INFORMATION
  Report Type: Spontaneous
  Country: US (occurrence: US)
  Receive Date: 20180907
  Receipt Date: 20180907
  Transmission Date: 20181010
  Serious: Yes (Hospitalization)
  Sender: FDA-Public Use
  Company Number: None

PATIENT
  Sex: Female

DRUGS (20)
  1. DULOXETINE. [Concomitant]
     Active Substance: DULOXETINE
  2. LOSARTAN POT [Concomitant]
     Active Substance: LOSARTAN POTASSIUM
  3. NITROSTAT [Concomitant]
     Active Substance: NITROGLYCERIN
  4. TRAMADOL. [Concomitant]
     Active Substance: TRAMADOL
  5. ATORVASTATIN [Concomitant]
     Active Substance: ATORVASTATIN
  6. BACLOFEN. [Concomitant]
     Active Substance: BACLOFEN
  7. GABAPENTIN. [Concomitant]
     Active Substance: GABAPENTIN
  8. HYDROXYZ [Concomitant]
     Active Substance: HYDROXYZINE HYDROCHLORIDE
  9. METOPROLOL TARTRATE. [Concomitant]
     Active Substance: METOPROLOL TARTRATE
  10. VITAMIN D [Concomitant]
     Active Substance: CHOLECALCIFEROL
  11. GLIMEPIRIDE. [Concomitant]
     Active Substance: GLIMEPIRIDE
  12. HUMULIN R [Concomitant]
     Active Substance: INSULIN HUMAN
  13. XELJANZ XR [Suspect]
     Active Substance: TOFACITINIB CITRATE
     Indication: RHEUMATOID ARTHRITIS
     Route: 048
     Dates: start: 20180201
  14. ARICEPT [Concomitant]
     Active Substance: DONEPEZIL HYDROCHLORIDE
  15. ASPIRIN. [Concomitant]
     Active Substance: ASPIRIN
  16. CLOPIDOGREL [Concomitant]
     Active Substance: CLOPIDOGREL BISULFATE
  17. FOLIC ACID. [Concomitant]
     Active Substance: FOLIC ACID
  18. ISOSORB MONO [Concomitant]
     Active Substance: ISOSORBIDE MONONITRATE
  19. LANTUS [Concomitant]
     Active Substance: INSULIN GLARGINE
  20. PANTOPRAZOLE [Concomitant]
     Active Substance: PANTOPRAZOLE

REACTIONS (1)
  - Cervical vertebral fracture [None]
